FAERS Safety Report 4358014-6 (Version None)
Quarter: 2004Q2

REPORT INFORMATION
  Report Type: 
  Country: None (occurrence: None)
  Receive Date: 20040510
  Receipt Date: 20040421
  Transmission Date: 20050107
  Serious: Yes (Other)
  Sender: FDA-Public Use
  Company Number: DSA_24271_2004

PATIENT
  Age: 33 Year
  Sex: Female
  Weight: 136.0791 kg

DRUGS (3)
  1. NIFEDIPINE [Suspect]
     Indication: HYPERTENSION
     Dosage: 60 MG Q DAY PO
     Route: 048
     Dates: start: 20030219, end: 20030301
  2. PROCARDIA [Concomitant]
  3. MULTI-VITAMINS [Concomitant]

REACTIONS (8)
  - ABORTION SPONTANEOUS [None]
  - DIZZINESS [None]
  - DYSPNOEA [None]
  - FEELING ABNORMAL [None]
  - FLUSHING [None]
  - PALPITATIONS [None]
  - PHARMACEUTICAL PRODUCT COMPLAINT [None]
  - PREGNANCY [None]
